FAERS Safety Report 5101732-2 (Version None)
Quarter: 2006Q3

REPORT INFORMATION
  Report Type: 
  Country: None (occurrence: None)
  Receive Date: 20060731
  Receipt Date: 20060518
  Transmission Date: 20061208
  Serious: No
  Sender: FDA-Public Use
  Company Number: 2006PV014062

PATIENT
  Age: 61 Year
  Sex: Female
  Weight: 96.1626 kg

DRUGS (6)
  1. BYETTA [Suspect]
     Indication: DIABETES MELLITUS INSULIN-DEPENDENT
     Dosage: 5 MCG;BID;SC
     Route: 058
     Dates: start: 20060502
  2. GLUCOPHAGE [Concomitant]
  3. GLUCOTROL [Concomitant]
  4. ZESTORETIC [Concomitant]
  5. LIPITOR [Concomitant]
  6. LASIX [Concomitant]

REACTIONS (6)
  - ABDOMINAL DISTENSION [None]
  - BLOOD GLUCOSE INCREASED [None]
  - DIARRHOEA [None]
  - DRUG EFFECT DECREASED [None]
  - HUNGER [None]
  - NAUSEA [None]
